FAERS Safety Report 6664479-7 (Version None)
Quarter: 2010Q2

REPORT INFORMATION
  Report Type: 
  Country: None (occurrence: None)
  Receive Date: 20100401
  Receipt Date: 20100319
  Transmission Date: 20101027
  Serious: Yes (Other)
  Sender: FDA-Public Use
  Company Number: NL-AMGEN-US398344

PATIENT
  Age: 45 Year
  Sex: Female
  Weight: 94 kg

DRUGS (7)
  1. ENBREL [Suspect]
     Indication: RHEUMATOID ARTHRITIS
     Route: 058
     Dates: start: 20091101
  2. NEXIUM [Concomitant]
     Indication: PROPHYLAXIS
  3. MULTI-VITAMINS [Concomitant]
  4. AERIUS [Concomitant]
     Indication: HYPERSENSITIVITY
  5. CALCIUM [Concomitant]
  6. SALOFALK [Concomitant]
     Indication: CROHN'S DISEASE
     Dosage: 6X1G
  7. XYZAL [Concomitant]
     Indication: HYPERSENSITIVITY
     Dosage: TWICE PER DAY

REACTIONS (6)
  - ANKLE FRACTURE [None]
  - HYPERSENSITIVITY [None]
  - NAUSEA [None]
  - PATHOLOGICAL FRACTURE [None]
  - PRURITUS [None]
  - RASH MACULAR [None]
